FAERS Safety Report 17570559 (Version 1)
Quarter: 2020Q1

REPORT INFORMATION
  Report Type: Spontaneous
  Country: GB (occurrence: GB)
  Receive Date: 20200323
  Receipt Date: 20200323
  Transmission Date: 20200409
  Serious: Yes (Other)
  Sender: FDA-Public Use
  Company Number: GB-BRISTOL-MYERS SQUIBB COMPANY-BMS-2020-021779

PATIENT
  Sex: Male

DRUGS (1)
  1. KENALOG [Suspect]
     Active Substance: TRIAMCINOLONE ACETONIDE
     Indication: PRODUCT USED FOR UNKNOWN INDICATION
     Dosage: UNK
     Route: 065
     Dates: start: 20170509

REACTIONS (16)
  - Insomnia [Unknown]
  - Muscle atrophy [Unknown]
  - Eye infection [Unknown]
  - Anxiety [Unknown]
  - Glaucoma [Unknown]
  - Hypertension [Unknown]
  - Arrhythmia [Unknown]
  - Headache [Unknown]
  - Depression [Unknown]
  - Suicidal ideation [Unknown]
  - Fluid retention [Unknown]
  - Muscular weakness [Unknown]
  - Hyperglycaemia [Unknown]
  - Seizure [Unknown]
  - Conjunctivitis [Unknown]
  - Visual impairment [Unknown]
